FAERS Safety Report 24612227 (Version 1)
Quarter: 2024Q4

REPORT INFORMATION
  Report Type: Spontaneous
  Country: US (occurrence: US)
  Receive Date: 20241113
  Receipt Date: 20241113
  Transmission Date: 20250114
  Serious: No
  Sender: JOHNSON AND JOHNSON
  Company Number: US-VIIV HEALTHCARE-US2024AMR135207

PATIENT
  Sex: Male

DRUGS (2)
  1. RILPIVIRINE [Suspect]
     Active Substance: RILPIVIRINE
     Indication: HIV infection
     Dosage: UNK UNK, MO (CABOTEGRAVIR 600MG + RILPIVIRINE 900MG (3ML) 1MO INITIAL, EVERY OTHER MONTH THEREAFTER)
     Route: 030
  2. CABOTEGRAVIR [Suspect]
     Active Substance: CABOTEGRAVIR
     Indication: HIV infection
     Dosage: UNK UNK, MO (CABOTEGRAVIR 600MG + RILPIVIRINE 900MG (3ML) 1MO INITIAL, EVERY OTHER MONTH THEREAFTER)
     Route: 030

REACTIONS (2)
  - Pain [Unknown]
  - Pyrexia [Unknown]
